FAERS Safety Report 9468658 (Version 2)
Quarter: 2014Q2

REPORT INFORMATION
  Report Type: Spontaneous
  Country: NL (occurrence: NL)
  Receive Date: 20130821
  Receipt Date: 20140417
  Transmission Date: 20141212
  Serious: Yes (Other)
  Sender: FDA-Public Use
  Company Number: NL-TEVA-426038ISR

PATIENT
  Sex: Female

DRUGS (1)
  1. PRAVASTATIN [Suspect]
     Dosage: 40 MILLIGRAM DAILY;
     Dates: start: 20040914, end: 201102

REACTIONS (1)
  - Amyotrophic lateral sclerosis [Unknown]
